FAERS Safety Report 18150703 (Version 1)
Quarter: 2020Q3

REPORT INFORMATION
  Report Type: Spontaneous
  Country: FR (occurrence: FR)
  Receive Date: 20200814
  Receipt Date: 20200814
  Transmission Date: 20201103
  Serious: Yes (Other)
  Sender: FDA-Public Use
  Company Number: FR-MYLANLABS-2020M1071516

PATIENT
  Age: 54 Year
  Sex: Female

DRUGS (5)
  1. PREDNISONE. [Suspect]
     Active Substance: PREDNISONE
     Indication: VASCULITIS GASTROINTESTINAL
     Dosage: 0.5 MILLIGRAM/KILOGRAM, QD, SLOW TAPERING OF DOSE
     Route: 065
  2. PREDNISONE. [Suspect]
     Active Substance: PREDNISONE
     Indication: CUTANEOUS VASCULITIS
     Dosage: 1 MILLIGRAM/KILOGRAM, QD, GRADUAL TAPERING
     Route: 065
  3. ADALIMUMAB [Suspect]
     Active Substance: ADALIMUMAB
     Indication: PSORIATIC ARTHROPATHY
     Dosage: INITIAL DOSE NOT STATED
     Route: 065
  4. METHOTREXATE. [Suspect]
     Active Substance: METHOTREXATE
     Indication: PSORIATIC ARTHROPATHY
     Dosage: INITIAL DOSE NOT STATED
     Route: 065
  5. SECUKINUMAB. [Concomitant]
     Active Substance: SECUKINUMAB
     Indication: PSORIATIC ARTHROPATHY
     Dosage: INITIAL DOSE NOT STATED
     Route: 065

REACTIONS (5)
  - Paradoxical psoriasis [Recovered/Resolved]
  - Condition aggravated [Recovered/Resolved]
  - Purpura [Recovered/Resolved]
  - Rebound effect [Recovered/Resolved]
  - Pustular psoriasis [Recovered/Resolved]
